FAERS Safety Report 15623011 (Version 1)
Quarter: 2018Q4

REPORT INFORMATION
  Report Type: Spontaneous
  Country: US (occurrence: US)
  Receive Date: 20181115
  Receipt Date: 20181115
  Transmission Date: 20190205
  Serious: No
  Sender: FDA-Public Use
  Company Number: US-ALLERGAN-1803502US

PATIENT
  Age: 40 Year
  Sex: Female
  Weight: 111 kg

DRUGS (1)
  1. GENTAMICIN UNK [Suspect]
     Active Substance: GENTAMICIN
     Indication: PRODUCT USED FOR UNKNOWN INDICATION
     Dosage: UNK, UNK
     Route: 065

REACTIONS (3)
  - Product packaging issue [Unknown]
  - Limb injury [Unknown]
  - Product contamination physical [Unknown]

NARRATIVE: CASE EVENT DATE: 20180118
